FAERS Safety Report 10647648 (Version 10)
Quarter: 2015Q2

REPORT INFORMATION
  Report Type: Spontaneous
  Country: CA (occurrence: CA)
  Receive Date: 20141211
  Receipt Date: 20150608
  Transmission Date: 20150821
  Serious: Yes (Other)
  Sender: FDA-Public Use
  Company Number: PHHY2014CA102364

PATIENT
  Age: 78 Year
  Sex: Male

DRUGS (5)
  1. BEXSERO [Suspect]
     Active Substance: MENINGOCOCCAL GROUP B VACCINE
     Indication: IMMUNISATION
     Dosage: .5 ML
     Route: 030
     Dates: start: 20140806, end: 20140806
  2. METOPROLOL [Suspect]
     Active Substance: METOPROLOL
     Indication: HYPERTENSION
     Dosage: 50 MG, BID
     Route: 048
  3. ALLOPURINOL. [Concomitant]
     Active Substance: ALLOPURINOL
     Indication: PRODUCT USED FOR UNKNOWN INDICATION
     Dosage: 100 MG, QD
     Route: 065
     Dates: start: 201306
  4. METOPROLOL [Suspect]
     Active Substance: METOPROLOL
     Dosage: 25 MG, BID
     Route: 048
     Dates: start: 201412
  5. COLCHICINE. [Concomitant]
     Active Substance: COLCHICINE
     Indication: PRODUCT USED FOR UNKNOWN INDICATION
     Dosage: 0.6 MG, BID
     Route: 065
     Dates: start: 201202

REACTIONS (22)
  - Yellow skin [Unknown]
  - Disease progression [Unknown]
  - Gout [Unknown]
  - Blood pressure decreased [Unknown]
  - Cardiomegaly [Unknown]
  - Rhinorrhoea [Not Recovered/Not Resolved]
  - Influenza [Unknown]
  - Blood pressure decreased [Recovered/Resolved]
  - Nasopharyngitis [Not Recovered/Not Resolved]
  - Jaundice [Unknown]
  - Productive cough [Recovering/Resolving]
  - Nasal congestion [Not Recovered/Not Resolved]
  - Cough [Recovered/Resolved]
  - Paroxysmal nocturnal haemoglobinuria [Unknown]
  - Vaccination site pain [Recovering/Resolving]
  - Dizziness [Recovered/Resolved]
  - Haemoglobin decreased [Unknown]
  - Haemoglobinuria [Unknown]
  - Malaise [Unknown]
  - Dizziness [Recovered/Resolved]
  - Off label use [Unknown]
  - Pallor [Unknown]

NARRATIVE: CASE EVENT DATE: 20140806
